FAERS Safety Report 25773226 (Version 7)
Quarter: 2025Q4

REPORT INFORMATION
  Report Type: Spontaneous
  Country: US (occurrence: US)
  Receive Date: 20250908
  Receipt Date: 20251103
  Transmission Date: 20260118
  Serious: No
  Sender: PFIZER
  Company Number: US-PFIZER INC-202500149591

PATIENT
  Age: 10 Year
  Sex: Female

DRUGS (3)
  1. GENOTROPIN [Suspect]
     Active Substance: SOMATROPIN
     Indication: Short stature
     Dosage: 1.0 MG, ALTERNATE DAY(ALTERNATING WITH 1.2MG) DAILY 7 DAYS/WEEK
     Dates: start: 20250730
  2. GENOTROPIN [Suspect]
     Active Substance: SOMATROPIN
     Indication: Hypopituitarism
     Dosage: 1.2 MG, ALTERNATE DAY (ALTERNATING WITH 1.0 MG) DAILY 7 DAYS/WEEK
     Dates: start: 20250730
  3. GENOTROPIN [Suspect]
     Active Substance: SOMATROPIN
     Indication: Growth hormone deficiency

REACTIONS (5)
  - Poor quality device used [Unknown]
  - Device use error [Unknown]
  - Device material issue [Unknown]
  - Device breakage [Unknown]
  - Illness [Unknown]

NARRATIVE: CASE EVENT DATE: 20250801
